FAERS Safety Report 8268836-7 (Version None)
Quarter: 2012Q2

REPORT INFORMATION
  Report Type: 
  Country: None (occurrence: None)
  Receive Date: 20120409
  Receipt Date: 20120409
  Transmission Date: 20120825
  Serious: Yes (Life-Threatening, Hospitalization)
  Sender: FDA-Public Use
  Company Number: None

PATIENT
  Age: 27 Year
  Sex: Female
  Weight: 68 kg

DRUGS (2)
  1. CHANTIX [Concomitant]
  2. ACETAMINOPHEN [Suspect]

REACTIONS (7)
  - SUICIDE ATTEMPT [None]
  - AFFECT LABILITY [None]
  - IMPAIRED WORK ABILITY [None]
  - OVERDOSE [None]
  - ALCOHOL USE [None]
  - FEELING ABNORMAL [None]
  - CRYING [None]
